FAERS Safety Report 16915141 (Version 2)
Quarter: 2019Q4

REPORT INFORMATION
  Report Type: Report from Study
  Country: IL (occurrence: IL)
  Receive Date: 20191014
  Receipt Date: 20191111
  Transmission Date: 20200122
  Serious: Yes (Death, Hospitalization, Other)
  Sender: FDA-Public Use
  Company Number: IL-SHIRE-IL201910467AA

PATIENT

DRUGS (2)
  1. VELAGLUCERASE ALFA [Suspect]
     Active Substance: VELAGLUCERASE ALFA
     Dosage: 60 INTERNATIONAL UNIT/KILOGRAM
     Route: 065
     Dates: start: 20111115
  2. VELAGLUCERASE ALFA [Suspect]
     Active Substance: VELAGLUCERASE ALFA
     Indication: GAUCHER^S DISEASE
     Dosage: 15 INTERNATIONAL UNIT/KILOGRAM, 5 DOSAGE(VIALS) FORM, 1X/2WKS
     Route: 065
     Dates: start: 20091124, end: 20110401

REACTIONS (6)
  - Pyrexia [Not Recovered/Not Resolved]
  - General physical health deterioration [Unknown]
  - Asthenia [Not Recovered/Not Resolved]
  - Unresponsive to stimuli [Not Recovered/Not Resolved]
  - Death [Unknown]
  - Chills [Unknown]

NARRATIVE: CASE EVENT DATE: 20191002
